FAERS Safety Report 11787057 (Version 2)
Quarter: 2016Q4

REPORT INFORMATION
  Report Type: Spontaneous
  Country: ES (occurrence: ES)
  Receive Date: 20151130
  Receipt Date: 20161114
  Transmission Date: 20170206
  Serious: Yes (Death, Other)
  Sender: FDA-Public Use
  Company Number: ES-JNJFOC-20151123180

PATIENT

DRUGS (3)
  1. RIBAVIRIN. [Suspect]
     Active Substance: RIBAVIRIN
     Indication: HEPATITIS C
     Route: 065
  2. SOFOSBUVIR [Suspect]
     Active Substance: SOFOSBUVIR
     Indication: HEPATITIS C
     Route: 065
  3. OLYSIO [Suspect]
     Active Substance: SIMEPREVIR
     Indication: HEPATITIS C
     Route: 065

REACTIONS (12)
  - Hepatocellular carcinoma [Unknown]
  - Anaemia [Unknown]
  - Liver disorder [Fatal]
  - Hepatitis C [Unknown]
  - Asthenia [Unknown]
  - Headache [Unknown]
  - Rash [Unknown]
  - Completed suicide [Fatal]
  - Pruritus [Unknown]
  - Schizophrenia [Unknown]
  - Insomnia [Unknown]
  - Abdominal pain [Unknown]
